FAERS Safety Report 19458423 (Version 2)
Quarter: 2021Q3

REPORT INFORMATION
  Report Type: Spontaneous
  Country: US (occurrence: US)
  Receive Date: 20210624
  Receipt Date: 20210805
  Transmission Date: 20211014
  Serious: No
  Sender: FDA-Public Use
  Company Number: US-PFIZER INC-2021005348

PATIENT
  Age: 76 Year
  Sex: Female
  Weight: 59.42 kg

DRUGS (2)
  1. CORTISONE [Concomitant]
     Active Substance: CORTISONE
     Dosage: UNK
  2. HYDROCORTISONE. [Suspect]
     Active Substance: HYDROCORTISONE
     Indication: CRANIOCEREBRAL INJURY
     Dosage: 10 MG, 3X/DAY
     Dates: start: 2011

REACTIONS (3)
  - Off label use [Unknown]
  - Intentional product misuse [Unknown]
  - Feeling abnormal [Unknown]

NARRATIVE: CASE EVENT DATE: 2011
